FAERS Safety Report 24965800 (Version 1)
Quarter: 2025Q1

REPORT INFORMATION
  Report Type: Spontaneous
  Country: US (occurrence: None)
  Receive Date: 20250212
  Receipt Date: 20250212
  Transmission Date: 20250408
  Serious: Yes (Hospitalization)
  Sender: FDA-CTU
  Company Number: None

PATIENT
  Age: 90 Year
  Sex: Male

DRUGS (1)
  1. FERUMOXYTOL [Suspect]
     Active Substance: FERUMOXYTOL
     Route: 042
     Dates: start: 20240709, end: 20240709

REACTIONS (7)
  - Dyspnoea [None]
  - Pain [None]
  - Respiratory depression [None]
  - Tachycardia [None]
  - Pain [None]
  - Pallor [None]
  - Foaming at mouth [None]

NARRATIVE: CASE EVENT DATE: 20240709
